FAERS Safety Report 7804475-7 (Version None)
Quarter: 2011Q4

REPORT INFORMATION
  Report Type: 
  Country: None (occurrence: None)
  Receive Date: 20111010
  Receipt Date: 20110927
  Transmission Date: 20120403
  Serious: Yes (Other)
  Sender: FDA-Public Use
  Company Number: US-BAYER-2011-003035

PATIENT
  Age: 27 Year
  Sex: Female
  Weight: 61.68 kg

DRUGS (7)
  1. ZOFRAN [Concomitant]
     Indication: ABDOMINAL PAIN
  2. IBUPROFEN [Concomitant]
     Indication: PAIN
     Dosage: 800 MG, PRN
     Dates: start: 20100801
  3. PENICILLIN V POTASSIUM [Concomitant]
     Indication: PHARYNGITIS STREPTOCOCCAL
     Dosage: 500 MG, TID
     Route: 048
     Dates: start: 20100720, end: 20100730
  4. YASMIN [Suspect]
     Indication: ACNE
     Dosage: UNK
     Route: 048
     Dates: start: 20090101, end: 20100901
  5. RETINOIDS FOR TREATMENT OF ACNE [Concomitant]
     Indication: ACNE
     Route: 061
  6. YASMIN [Suspect]
     Indication: CONTRACEPTION
  7. CLINDAMYCIN PHOSPHATE [Concomitant]
     Indication: ACNE
     Route: 061

REACTIONS (7)
  - CHOLECYSTITIS CHRONIC [None]
  - PAIN [None]
  - ABDOMINAL PAIN UPPER [None]
  - PYREXIA [None]
  - WHITE BLOOD CELL COUNT INCREASED [None]
  - GALLBLADDER INJURY [None]
  - VOMITING [None]
